FAERS Safety Report 7502521-1 (Version None)
Quarter: 2011Q2

REPORT INFORMATION
  Report Type: 
  Country: None (occurrence: None)
  Receive Date: 20110523
  Receipt Date: 20110523
  Transmission Date: 20111010
  Serious: Yes (Hospitalization)
  Sender: FDA-Public Use
  Company Number: None

PATIENT
  Age: 75 Year
  Sex: Female
  Weight: 64 kg

DRUGS (1)
  1. ARIXTRA [Suspect]
     Indication: PULMONARY EMBOLISM
     Dosage: 7.5MG DAILY SQ
     Dates: start: 20101226, end: 20110102

REACTIONS (8)
  - PULMONARY EMBOLISM [None]
  - INTRA-ABDOMINAL HAEMATOMA [None]
  - HAEMOGLOBIN DECREASED [None]
  - BLOOD CREATININE INCREASED [None]
  - ADHESION [None]
  - ABDOMINAL DISTENSION [None]
  - HAEMATOCRIT DECREASED [None]
  - ABDOMINAL PAIN [None]
